FAERS Safety Report 4374643-8 (Version None)
Quarter: 2004Q2

REPORT INFORMATION
  Report Type: 
  Country: None (occurrence: None)
  Receive Date: 20040609
  Receipt Date: 20040528
  Transmission Date: 20050107
  Serious: Yes (Disabling)
  Sender: FDA-Public Use
  Company Number: BE-GLAXOSMITHKLINE-B0334267A

PATIENT
  Age: 59 Year
  Sex: Male
  Weight: 68 kg

DRUGS (4)
  1. DUTASTERIDE [Suspect]
     Indication: BENIGN PROSTATIC HYPERPLASIA
     Dosage: .5MG PER DAY
     Route: 048
     Dates: start: 20040305, end: 20040403
  2. TAMSULOSIN [Suspect]
     Indication: BENIGN PROSTATIC HYPERPLASIA
     Dosage: .4MG PER DAY
     Route: 048
     Dates: start: 20040305, end: 20040403
  3. HYPERLIPEN [Concomitant]
     Dosage: 100MG PER DAY
     Dates: start: 20000101
  4. LORAZEPAM [Concomitant]
     Indication: INSOMNIA
     Dosage: 2.5MG PER DAY
     Dates: start: 19950101

REACTIONS (3)
  - ASTHENIA [None]
  - HYPOTENSION [None]
  - VERTIGO [None]
